FAERS Safety Report 25608950 (Version 2)
Quarter: 2025Q4

REPORT INFORMATION
  Report Type: Spontaneous
  Country: US (occurrence: US)
  Receive Date: 20250726
  Receipt Date: 20251026
  Transmission Date: 20260117
  Serious: Yes (Other)
  Sender: SANOFI AVENTIS
  Company Number: US-SA-2025SA213445

PATIENT
  Sex: Male
  Weight: 93.18 kg

DRUGS (44)
  1. KEVZARA [Suspect]
     Active Substance: SARILUMAB
     Indication: Polymyalgia rheumatica
     Dosage: 200 MG, QOW
     Route: 058
  2. AMVUTTRA [Concomitant]
     Active Substance: VUTRISIRAN
  3. VYNDAQEL [Concomitant]
     Active Substance: TAFAMIDIS MEGLUMINE
  4. SODIUM CHLORIDE [Concomitant]
     Active Substance: SODIUM CHLORIDE
  5. LIDOCAINE [Concomitant]
     Active Substance: LIDOCAINE
  6. EPINEPHRINE [Concomitant]
     Active Substance: EPINEPHRINE
  7. DIPHENHYDRAMINE HYDROCHLORIDE [Concomitant]
     Active Substance: DIPHENHYDRAMINE HYDROCHLORIDE
  8. ACETAMINOPHEN [Concomitant]
     Active Substance: ACETAMINOPHEN
  9. GAMMAGARD S/D [Concomitant]
     Active Substance: HUMAN IMMUNOGLOBULIN G
  10. PREDNISONE [Concomitant]
     Active Substance: PREDNISONE
  11. PRILOSEC OTC [Concomitant]
     Active Substance: OMEPRAZOLE MAGNESIUM
  12. TORSEMIDE [Concomitant]
     Active Substance: TORSEMIDE
  13. PROBIOTICS NOS [Concomitant]
     Active Substance: PROBIOTICS NOS
  14. FIBERCON [Concomitant]
     Active Substance: CALCIUM POLYCARBOPHIL
  15. MELATONIN [Concomitant]
     Active Substance: MELATONIN
  16. VITAMIN D3 [Concomitant]
     Active Substance: CHOLECALCIFEROL
  17. VITAMIN B12 [Concomitant]
     Active Substance: CYANOCOBALAMIN
  18. MEDICAL FOOD [Concomitant]
     Active Substance: MEDICAL FOOD
  19. LEVOXYL [Concomitant]
     Active Substance: LEVOTHYROXINE SODIUM
  20. ALBUTEROL SULFATE [Concomitant]
     Active Substance: ALBUTEROL SULFATE
  21. BENADRYL [Concomitant]
     Active Substance: DIPHENHYDRAMINE HYDROCHLORIDE
  22. METOPROLOL TARTRATE [Concomitant]
     Active Substance: METOPROLOL TARTRATE
  23. LIDODERM [Concomitant]
     Active Substance: LIDOCAINE
  24. TYLENOL EXTRA STRENGTH [Concomitant]
     Active Substance: ACETAMINOPHEN
  25. VITAMIN A [Concomitant]
     Active Substance: VITAMIN A
  26. VITAMIN A [Concomitant]
     Active Substance: VITAMIN A
  27. ELIQUIS [Concomitant]
     Active Substance: APIXABAN
  28. AMIODARONE HYDROCHLORIDE [Concomitant]
     Active Substance: AMIODARONE HYDROCHLORIDE
  29. HIZENTRA [Concomitant]
     Active Substance: HUMAN IMMUNOGLOBULIN G
  30. HIZENTRA [Concomitant]
     Active Substance: HUMAN IMMUNOGLOBULIN G
  31. HIZENTRA [Concomitant]
     Active Substance: HUMAN IMMUNOGLOBULIN G
  32. PROBIOTICS NOS [Concomitant]
     Active Substance: PROBIOTICS NOS
  33. VITAMIN D3 [Concomitant]
     Active Substance: CHOLECALCIFEROL
  34. MELATONIN [Concomitant]
     Active Substance: MELATONIN
  35. PREDNISONE [Concomitant]
     Active Substance: PREDNISONE
  36. PENTOXIFYLLINE [Concomitant]
     Active Substance: PENTOXIFYLLINE
  37. OPZELURA [Concomitant]
     Active Substance: RUXOLITINIB PHOSPHATE
  38. OMEPRAZOLE [Concomitant]
     Active Substance: OMEPRAZOLE
  39. JUBLIA [Concomitant]
     Active Substance: EFINACONAZOLE
  40. ACETAMINOPHEN\HYDROCODONE [Concomitant]
     Active Substance: ACETAMINOPHEN\HYDROCODONE
  41. FARXIGA [Concomitant]
     Active Substance: DAPAGLIFLOZIN PROPANEDIOL
  42. EVENITY [Concomitant]
     Active Substance: ROMOSOZUMAB-AQQG
  43. POTASSIUM CHLORIDE [Concomitant]
     Active Substance: POTASSIUM CHLORIDE
  44. METOPROLOL SUCCINATE [Concomitant]
     Active Substance: METOPROLOL SUCCINATE

REACTIONS (4)
  - Polymyalgia rheumatica [Unknown]
  - Drug effect less than expected [Unknown]
  - Fatigue [Unknown]
  - Urinary tract infection [Unknown]
